FAERS Safety Report 25793030 (Version 2)
Quarter: 2025Q4

REPORT INFORMATION
  Report Type: Spontaneous
  Country: BR (occurrence: BR)
  Receive Date: 20250911
  Receipt Date: 20251121
  Transmission Date: 20260117
  Serious: Yes (Hospitalization, Other)
  Sender: NOVARTIS
  Company Number: BR-002147023-NVSC2025BR138670

PATIENT
  Sex: Male

DRUGS (17)
  1. ELTROMBOPAG [Suspect]
     Active Substance: ELTROMBOPAG
     Indication: Foetal exposure during pregnancy
     Dosage: UNK (MATERNAL EXPOSURE DURING PREGNANCY 25 MG, QD)
     Route: 064
  2. ELTROMBOPAG [Suspect]
     Active Substance: ELTROMBOPAG
     Dosage: UNK (MATERNAL EXPOSURE DURING PREGNANCY 50 MG, QD)
     Route: 064
  3. PREDNISONE [Suspect]
     Active Substance: PREDNISONE
     Indication: Foetal exposure during pregnancy
     Dosage: UNK (MATERNAL EXPOSURE DURING PREGNANCY 1 MG/KG/DAY)
     Route: 064
  4. PREDNISONE [Suspect]
     Active Substance: PREDNISONE
     Dosage: UNK (MATERNAL EXPOSURE DURING PREGNANCY 60 MG, QD)
     Route: 064
  5. PREDNISONE [Suspect]
     Active Substance: PREDNISONE
     Dosage: UNK (MATERNAL EXPOSURE DURING PREGNANCY 60 MG, QD)
     Route: 064
  6. PREDNISONE [Suspect]
     Active Substance: PREDNISONE
     Dosage: UNK (MATERNAL EXPOSURE DURING PREGNANCY 40 MG, QD)
     Route: 064
  7. PREDNISONE [Suspect]
     Active Substance: PREDNISONE
     Dosage: UNK (MATERNAL EXPOSURE DURING PREGNANCY 20 MG, QD)
     Route: 064
  8. PREDNISONE [Suspect]
     Active Substance: PREDNISONE
     Dosage: UNK (MATERNAL EXPOSURE DURING PREGNANCY 10 MG, QD)
     Route: 064
  9. HUMAN IMMUNOGLOBULIN G [Suspect]
     Active Substance: HUMAN IMMUNOGLOBULIN G
     Indication: Foetal exposure during pregnancy
     Dosage: UNK (MATERNAL EXPOSURE DURING PREGNANCY 0.4 MG/KG)
     Route: 064
  10. HUMAN IMMUNOGLOBULIN G [Suspect]
     Active Substance: HUMAN IMMUNOGLOBULIN G
     Dosage: UNK (MATERNAL EXPOSURE DURING PREGNANCY 70 G, QD)
     Route: 064
  11. HUMAN IMMUNOGLOBULIN G [Suspect]
     Active Substance: HUMAN IMMUNOGLOBULIN G
     Dosage: UNK (MATERNAL EXPOSURE DURING PREGNANCY 70 G, QD)
     Route: 064
  12. HUMAN IMMUNOGLOBULIN G [Suspect]
     Active Substance: HUMAN IMMUNOGLOBULIN G
     Dosage: UNK (MATERNAL EXPOSURE DURING PREGNANCY 70 G, QD)
     Route: 064
  13. HUMAN IMMUNOGLOBULIN G [Suspect]
     Active Substance: HUMAN IMMUNOGLOBULIN G
     Dosage: UNK (MATERNAL EXPOSURE DURING PREGNANCY 30 G, QD)
     Route: 064
  14. METHYLPREDNISOLONE [Suspect]
     Active Substance: METHYLPREDNISOLONE
     Indication: Foetal exposure during pregnancy
     Dosage: UNK (MATERNAL EXPOSURE DURING PREGNANCY)
     Route: 064
  15. OXYTOCIN [Concomitant]
     Active Substance: OXYTOCIN
     Indication: Foetal exposure during pregnancy
     Dosage: UNK (MATERNAL EXPOSURE DURING PREGNANCY)
     Route: 064
  16. ERGOTAMINE [Concomitant]
     Active Substance: CAFFEINE\ERGOTAMINE\ERGOTAMINE TARTRATE
     Indication: Foetal exposure during pregnancy
     Dosage: UNK (MATERNAL EXPOSURE DURING PREGNANCY)
     Route: 064
  17. MISOPROSTOL [Concomitant]
     Active Substance: MISOPROSTOL
     Indication: Foetal exposure during pregnancy
     Dosage: UNK (MATERNAL EXPOSURE DURING PREGNANCY)
     Route: 064

REACTIONS (6)
  - Jaundice neonatal [Unknown]
  - Premature baby [Unknown]
  - Platelet count decreased [Unknown]
  - Low birth weight baby [Unknown]
  - Haematoma [Unknown]
  - Foetal exposure during pregnancy [Unknown]
